FAERS Safety Report 9353062 (Version 3)
Quarter: 2015Q1

REPORT INFORMATION
  Report Type: Spontaneous
  Country: US (occurrence: None)
  Receive Date: 20130612
  Receipt Date: 20150218
  Transmission Date: 20150721
  Serious: Yes (Death, Other)
  Sender: FDA-Public Use
  Company Number: 1306-734

PATIENT
  Age: 80 Year
  Sex: Male

DRUGS (2)
  1. EYLEA [Suspect]
     Active Substance: AFLIBERCEPT
     Indication: AGE-RELATED MACULAR DEGENERATION
     Dates: start: 20120425, end: 20130417
  2. EYLEA [Suspect]
     Active Substance: AFLIBERCEPT
     Indication: AGE-RELATED MACULAR DEGENERATION
     Dosage: 2 MG,  Q8WKS, INTRAOCULAR
     Route: 031
     Dates: start: 20120425, end: 20130417

REACTIONS (1)
  - Death [None]

NARRATIVE: CASE EVENT DATE: 20130423
